FAERS Safety Report 26160195 (Version 1)
Quarter: 2025Q4

REPORT INFORMATION
  Report Type: Spontaneous
  Country: US (occurrence: None)
  Receive Date: 20251216
  Receipt Date: 20251216
  Transmission Date: 20260117
  Serious: No
  Sender: ENDO
  Company Number: US-ENDO USA, INC.-2025-002068

PATIENT
  Sex: Male

DRUGS (2)
  1. XIAFLEX [Suspect]
     Active Substance: COLLAGENASE CLOSTRIDIUM HISTOLYTICUM
     Indication: Peyronie^s disease
     Dosage: 0.58 MILLIGRAM, UNKNOWN (1X ON 2 DAYS, 1-3 DAYS APART EVERY 6 WEEKS)
  2. XIAFLEX [Suspect]
     Active Substance: COLLAGENASE CLOSTRIDIUM HISTOLYTICUM
     Dosage: 0.58 MILLIGRAM, UNKNOWN (1X ON 2 DAYS, 1-3 DAYS APART EVERY 6 WEEKS)

REACTIONS (3)
  - Rash [Unknown]
  - Nodule [Unknown]
  - Contusion [Unknown]

NARRATIVE: CASE EVENT DATE: 20250101
